FAERS Safety Report 9614484 (Version 1)
Quarter: 2013Q4

REPORT INFORMATION
  Report Type: Spontaneous
  Country: US (occurrence: US)
  Receive Date: 20131011
  Receipt Date: 20131011
  Transmission Date: 20140711
  Serious: Yes (Other)
  Sender: FDA-Public Use
  Company Number: US-PFIZER INC-2013289691

PATIENT
  Age: 48 Year
  Sex: Male
  Weight: 107 kg

DRUGS (7)
  1. CELEBREX [Suspect]
     Indication: BACK PAIN
     Dosage: 200 MG, 2X/DAY
     Route: 048
     Dates: start: 2010
  2. CELEBREX [Suspect]
     Dosage: 200 MG, 2X/DAY
     Route: 048
     Dates: start: 201309, end: 201309
  3. MELOXICAM [Suspect]
     Dosage: 15 MG, 2X/DAY
     Dates: end: 2013
  4. HYDROCODONE W/ACETAMINOPHEN [Concomitant]
     Dosage: 10/325 MG, UNK
  5. LISINOPRIL W/HYDROCHLOROTHIAZIDE [Concomitant]
     Dosage: 20/12.5 MG, UNK
  6. GABAPENTIN [Concomitant]
     Dosage: 300 MG, 3X/DAY
  7. WELLBUTRIN XL [Concomitant]
     Dosage: UNK

REACTIONS (4)
  - Intervertebral disc disorder [Unknown]
  - Blood cholesterol increased [Unknown]
  - Back pain [Unknown]
  - Drug ineffective [Unknown]
